FAERS Safety Report 6004737-2 (Version None)
Quarter: 2008Q4

REPORT INFORMATION
  Report Type: 
  Country: None (occurrence: None)
  Receive Date: 20081216
  Receipt Date: 20081208
  Transmission Date: 20090506
  Serious: No
  Sender: FDA-Public Use
  Company Number: US-B.I. PHARMACEUTICALS,INC./RIDGEFIELD-2008-BP-18385BP

PATIENT
  Age: 76 Year
  Sex: Male

DRUGS (7)
  1. FLOMAX [Suspect]
     Dosage: .4MG
     Route: 048
     Dates: start: 20080828
  2. AVODART [Suspect]
     Indication: URINARY TRACT DISORDER
  3. COUMADIN [Concomitant]
     Indication: ATRIAL FIBRILLATION
  4. COREG [Concomitant]
     Indication: ATRIAL FIBRILLATION
  5. ALTACE [Concomitant]
     Indication: ATRIAL FIBRILLATION
  6. DIGOXIN [Concomitant]
     Indication: ATRIAL FIBRILLATION
  7. LASIX [Concomitant]
     Indication: ATRIAL FIBRILLATION

REACTIONS (1)
  - DRUG INEFFECTIVE [None]
